FAERS Safety Report 25398073 (Version 1)
Quarter: 2025Q2

REPORT INFORMATION
  Report Type: Spontaneous
  Country: US (occurrence: US)
  Receive Date: 20250604
  Receipt Date: 20250604
  Transmission Date: 20250717
  Serious: No
  Sender: MYCOVIA PHARMACEUTICALS, INC.
  Company Number: US-MYCOVIA PHARMACEUTICALS, INC.-US-MYC-25-00004

PATIENT

DRUGS (3)
  1. VIVJOA [Suspect]
     Active Substance: OTESECONAZOLE
     Indication: Vulvovaginal candidiasis
     Route: 048
     Dates: start: 20250403, end: 20250403
  2. VIVJOA [Suspect]
     Active Substance: OTESECONAZOLE
     Route: 048
     Dates: start: 20250404, end: 20250404
  3. VIVJOA [Suspect]
     Active Substance: OTESECONAZOLE
     Dosage: 150 MILLIGRAM, WEEKLY (1 CAPSULE) X 11 WEEKS
     Route: 048
     Dates: start: 20250417

REACTIONS (1)
  - Urine flow decreased [Not Recovered/Not Resolved]

NARRATIVE: CASE EVENT DATE: 20250403
